FAERS Safety Report 18864893 (Version 1)
Quarter: 2021Q1

REPORT INFORMATION
  Report Type: Spontaneous
  Country: US (occurrence: US)
  Receive Date: 20210208
  Receipt Date: 20210208
  Transmission Date: 20210420
  Serious: Yes (Other)
  Sender: FDA-Public Use
  Company Number: None

PATIENT
  Age: 80 Year
  Sex: Male

DRUGS (10)
  1. ASPIRIN 81MG [Concomitant]
     Active Substance: ASPIRIN
  2. LOSARTAN 100MG [Concomitant]
     Active Substance: LOSARTAN
  3. ROSUVASTATIN 40MG [Concomitant]
     Active Substance: ROSUVASTATIN
  4. JULUCA [Suspect]
     Active Substance: DOLUTEGRAVIR SODIUM\RILPIVIRINE HYDROCHLORIDE
     Indication: HIV INFECTION
     Route: 048
     Dates: start: 20210109
  5. METFORMIN 500MG [Concomitant]
     Active Substance: METFORMIN HYDROCHLORIDE
  6. FENFIBRATE 134MG [Concomitant]
  7. METOPROLOL ER 25MG [Concomitant]
  8. VITAMIN D2 50,000 [Concomitant]
  9. TRADJENTA [Concomitant]
     Active Substance: LINAGLIPTIN
  10. FAMOTIDINE 40MG [Concomitant]
     Active Substance: FAMOTIDINE

REACTIONS (3)
  - Faeces discoloured [None]
  - Flatulence [None]
  - Melaena [None]

NARRATIVE: CASE EVENT DATE: 20210208
